FAERS Safety Report 21724012 (Version 2)
Quarter: 2023Q1

REPORT INFORMATION
  Report Type: Spontaneous
  Country: NZ (occurrence: NZ)
  Receive Date: 20221213
  Receipt Date: 20230203
  Transmission Date: 20230417
  Serious: Yes (Death, Hospitalization, Other)
  Sender: FDA-Public Use
  Company Number: NZ-TEVA-2022-NZ-2834027

PATIENT
  Age: 62 Year
  Sex: Male

DRUGS (5)
  1. QUINAPRIL [Suspect]
     Active Substance: QUINAPRIL
     Indication: Blood pressure abnormal
     Dosage: 20 MILLIGRAM DAILY;
     Route: 048
     Dates: start: 201905, end: 2022
  2. DOXAZOSIN [Concomitant]
     Active Substance: DOXAZOSIN MESYLATE
     Indication: Prostatic disorder
     Dosage: 4 MILLIGRAM DAILY;
     Route: 048
     Dates: start: 202105
  3. DOXAZOSIN [Concomitant]
     Active Substance: DOXAZOSIN MESYLATE
     Indication: Blood pressure abnormal
  4. METOPROLOL [Concomitant]
     Active Substance: METOPROLOL
     Indication: Blood pressure abnormal
     Dosage: 95 MILLIGRAM DAILY;
     Route: 048
     Dates: start: 202105
  5. OMEPRAZOLE [Concomitant]
     Active Substance: OMEPRAZOLE
     Indication: Dyspepsia
     Dosage: 40 MILLIGRAM DAILY;
     Route: 048
     Dates: start: 202111

REACTIONS (4)
  - Idiopathic angioedema [Fatal]
  - Peripheral swelling [Unknown]
  - Face oedema [Unknown]
  - Product quality issue [Unknown]

NARRATIVE: CASE EVENT DATE: 20221001
